FAERS Safety Report 5303209-8 (Version None)
Quarter: 2007Q2

REPORT INFORMATION
  Report Type: 
  Country: None (occurrence: None)
  Receive Date: 20070420
  Receipt Date: 20070416
  Transmission Date: 20071010
  Serious: Yes (Hospitalization, Other)
  Sender: FDA-Public Use
  Company Number: FR-BRISTOL-MYERS SQUIBB COMPANY-13751631

PATIENT
  Age: 78 Year
  Sex: Female

DRUGS (6)
  1. APROVEL TABS [Suspect]
     Indication: HYPERTENSION
     Route: 048
  2. PREVISCAN [Interacting]
     Dates: end: 20060611
  3. DURAGESIC-100 [Concomitant]
     Indication: ARTHRALGIA
  4. BURINEX [Concomitant]
  5. SOTALOL HCL [Concomitant]
  6. ALDACTONE [Concomitant]
     Indication: HYPERTENSION

REACTIONS (3)
  - DRUG INTERACTION [None]
  - OVERDOSE [None]
  - RENAL FAILURE [None]
